FAERS Safety Report 5226519-1 (Version None)
Quarter: 2007Q1

REPORT INFORMATION
  Report Type: 
  Country: None (occurrence: None)
  Receive Date: 20070201
  Receipt Date: 20070123
  Transmission Date: 20070707
  Serious: Yes (Hospitalization)
  Sender: FDA-Public Use
  Company Number: US-ABBOTT-07P-163-0356700-00

PATIENT
  Sex: Female

DRUGS (3)
  1. BIAXIN [Suspect]
     Indication: DRUG USE FOR UNKNOWN INDICATION
     Dates: start: 20040802
  2. LEXAPRO [Interacting]
     Indication: DRUG USE FOR UNKNOWN INDICATION
     Dates: start: 20030128
  3. LEXAPRO [Interacting]
     Dates: start: 20031031

REACTIONS (4)
  - AFFECTIVE DISORDER [None]
  - BIPOLAR DISORDER [None]
  - DRUG INTERACTION [None]
  - PSYCHOTIC DISORDER [None]
